FAERS Safety Report 15757158 (Version 1)
Quarter: 2018Q4

REPORT INFORMATION
  Report Type: Spontaneous
  Country: ES (occurrence: ES)
  Receive Date: 20181224
  Receipt Date: 20181224
  Transmission Date: 20190205
  Serious: Yes (Life-Threatening, Hospitalization)
  Sender: FDA-Public Use
  Company Number: ES-TEVA-2018-ES-989928

PATIENT
  Age: 46 Year
  Sex: Male

DRUGS (6)
  1. AMLODIPINO NORMON 10 MG COMPRIMIDOS EFG , 500 COMPRIMIDOS [Suspect]
     Active Substance: AMLODIPINE BESYLATE
     Indication: HYPERTENSION
     Dosage: 10 MILLIGRAM DAILY;
     Route: 048
     Dates: start: 201807
  2. PARACETAMOL TECNIGEN 1 G COMPRIMIDOS EFG, 40 COMPRIMIDOS [Concomitant]
     Active Substance: ACETAMINOPHEN
     Indication: POSTOPERATIVE ANALGESIA
     Dosage: 1 GRAM DAILY;
     Route: 048
     Dates: start: 201807
  3. HYDRAPRES 50 MG COMPRIMIDOS, 30 COMPRIMIDOS [Suspect]
     Active Substance: HYDRALAZINE HYDROCHLORIDE
     Indication: HYPERTENSION
     Route: 048
     Dates: start: 201807
  4. HIDROCLOROTIAZIDA KERN PHARMA 25 MG COMPRIMIDOS , 20 COMPRIMIDOS [Suspect]
     Active Substance: HYDROCHLOROTHIAZIDE
     Indication: HYPERTENSION
     Dosage: 25 MILLIGRAM DAILY;
     Route: 048
     Dates: start: 201807
  5. DOXAZOSINA NEO TEVA 8 MG COMPRIMIDOS DE LIBERACION PROLONGADA EFG , 28 [Suspect]
     Active Substance: DOXAZOSIN MESYLATE
     Indication: HYPERTENSION
     Route: 048
     Dates: start: 201807
  6. ADIRO 100 MG COMPRIMIDOS GASTRORRESISTENTES EFG , 500 COMPRIMIDO S [Suspect]
     Active Substance: ASPIRIN
     Indication: CARDIOVASCULAR EVENT PROPHYLAXIS
     Route: 048
     Dates: start: 201807

REACTIONS (1)
  - Toxic epidermal necrolysis [Unknown]

NARRATIVE: CASE EVENT DATE: 20180815
